FAERS Safety Report 24660756 (Version 1)
Quarter: 2024Q4

REPORT INFORMATION
  Report Type: Spontaneous
  Country: US (occurrence: None)
  Receive Date: 20241125
  Receipt Date: 20241125
  Transmission Date: 20250114
  Serious: No
  Sender: Public
  Company Number: None

PATIENT
  Sex: Male
  Weight: 94.5 kg

DRUGS (3)
  1. GABAPENTIN [Suspect]
     Active Substance: GABAPENTIN
  2. Blood pressure pills [Concomitant]
  3. prosthelic leg [Concomitant]

REACTIONS (2)
  - Skin discolouration [None]
  - Therapy change [None]
